FAERS Safety Report 10530121 (Version 1)
Quarter: 2014Q4

REPORT INFORMATION
  Report Type: Spontaneous
  Country: JP (occurrence: None)
  Receive Date: 20141017
  Receipt Date: 20141017
  Transmission Date: 20150528
  Serious: No
  Sender: FDA-Public Use
  Company Number: A201410347

PATIENT
  Age: 20 Year
  Sex: Female

DRUGS (3)
  1. DEZOLAM(ETIZOLAM) [Concomitant]
  2. PAROXETINE HYDROCHLORIDE. [Suspect]
     Active Substance: PAROXETINE HYDROCHLORIDE
     Indication: MENTAL DISORDER
     Route: 048
     Dates: start: 20140620, end: 20140708
  3. BROTIZOLAM(BROTIZOLAM) [Concomitant]

REACTIONS (1)
  - Haemorrhage subcutaneous [None]
